FAERS Safety Report 21284339 (Version 1)
Quarter: 2022Q3

REPORT INFORMATION
  Report Type: Spontaneous
  Country: FR (occurrence: FR)
  Receive Date: 20220902
  Receipt Date: 20220902
  Transmission Date: 20221027
  Serious: Yes (Hospitalization)
  Sender: FDA-Public Use
  Company Number: None

PATIENT
  Age: 70 Year
  Sex: Male

DRUGS (4)
  1. NIVOLUMAB [Suspect]
     Active Substance: NIVOLUMAB
     Indication: Renal cancer
     Dosage: C3
     Route: 042
     Dates: start: 20220613
  2. NIVOLUMAB [Suspect]
     Active Substance: NIVOLUMAB
     Dosage: CURE 1
     Route: 042
     Dates: start: 20220314
  3. IPILIMUMAB [Suspect]
     Active Substance: IPILIMUMAB
     Indication: Renal cancer
     Dosage: C1
     Route: 042
     Dates: start: 20220314
  4. IPILIMUMAB [Suspect]
     Active Substance: IPILIMUMAB
     Dosage: C3
     Route: 042
     Dates: start: 20220613

REACTIONS (1)
  - Enteritis [Not Recovered/Not Resolved]

NARRATIVE: CASE EVENT DATE: 20220613
